FAERS Safety Report 5571479-7 (Version None)
Quarter: 2007Q4

REPORT INFORMATION
  Report Type: 
  Country: None (occurrence: None)
  Receive Date: 20071221
  Receipt Date: 20071221
  Transmission Date: 20080405
  Serious: Yes (Hospitalization)
  Sender: FDA-Public Use
  Company Number: PHHO2004US01058

PATIENT
  Age: 84 Year
  Sex: Male
  Weight: 90 kg

DRUGS (5)
  1. ZOLEDRONIC ACID [Suspect]
     Indication: OSTEOPOROTIC FRACTURE
     Dosage: DOUBLE BLIND
     Route: 042
     Dates: start: 20031015
  2. ZOLEDRONIC ACID [Suspect]
     Dosage: 5MG, ONCE YEARLY
  3. GLIPIZIDE [Concomitant]
     Indication: DIABETES MELLITUS
     Dosage: 5 MG, QD
     Route: 048
  4. VITAMIN D [Concomitant]
     Indication: OSTEOPOROTIC FRACTURE
     Dosage: 400 IU, BID
     Route: 048
  5. CALCIUM CARBONATE [Concomitant]
     Dosage: 500 MG, BID
     Route: 048

REACTIONS (4)
  - CELLULITIS [None]
  - DECUBITUS ULCER [None]
  - LEG AMPUTATION [None]
  - OSTEOMYELITIS [None]
